FAERS Safety Report 9418596 (Version 2)
Quarter: 2013Q3

REPORT INFORMATION
  Report Type: Report from Study
  Country: FR (occurrence: FR)
  Receive Date: 20130725
  Receipt Date: 20130731
  Transmission Date: 20140515
  Serious: Yes (Hospitalization)
  Sender: FDA-Public Use
  Company Number: FR-ROCHE-1252701

PATIENT
  Age: 44 Year
  Sex: Male

DRUGS (6)
  1. PEG-INTERFERON ALFA 2A [Suspect]
     Indication: CHRONIC HEPATITIS C
     Route: 058
     Dates: start: 20121012, end: 20130614
  2. RIBAVIRIN [Suspect]
     Indication: CHRONIC HEPATITIS C
     Route: 048
     Dates: start: 20121012, end: 20130620
  3. BOCEPREVIR [Suspect]
     Indication: CHRONIC HEPATITIS C
     Route: 048
     Dates: start: 20121109, end: 20130620
  4. TRUVADA [Concomitant]
     Indication: HIV INFECTION
     Dosage: 1 CP DAILY
     Route: 065
     Dates: start: 20120919
  5. PREZISTA [Concomitant]
     Indication: HIV INFECTION
     Route: 065
     Dates: start: 20120919
  6. NORVIR [Concomitant]
     Indication: HIV INFECTION
     Route: 065
     Dates: start: 20120919

REACTIONS (2)
  - Hyperthermia [Recovered/Resolved]
  - Cough [Recovered/Resolved]
